FAERS Safety Report 4444129-0 (Version None)
Quarter: 2004Q3

REPORT INFORMATION
  Report Type: 
  Country: None (occurrence: None)
  Receive Date: 20040729
  Receipt Date: 20030929
  Transmission Date: 20050211
  Serious: Yes (Death)
  Sender: FDA-Public Use
  Company Number: USA-2003-0009823

PATIENT
  Age: 36 Year
  Sex: Male
  Weight: 94.8 kg

DRUGS (5)
  1. MORPHINE SULFATE [Suspect]
  2. ALPRAZOLAM [Suspect]
  3. VALPROIC ACID [Suspect]
  4. CARISOPRODOL [Suspect]
  5. ALCOHOL (ETHANOL) [Suspect]

REACTIONS (2)
  - ACCIDENTAL OVERDOSE [None]
  - MULTIPLE DRUG OVERDOSE [None]
